FAERS Safety Report 14485804 (Version 1)
Quarter: 2018Q1

REPORT INFORMATION
  Report Type: Not Available
  Country: IT (occurrence: IT)
  Receive Date: 20180205
  Receipt Date: 20180205
  Transmission Date: 20180509
  Serious: Yes (Hospitalization)
  Sender: FDA-Public Use
  Company Number: IT-ANIPHARMA-2018-IT-000015

PATIENT
  Age: 58 Year
  Sex: Female

DRUGS (1)
  1. FLECAINIDE ACETATE (NON-SPECIFIC) [Suspect]
     Active Substance: FLECAINIDE ACETATE
     Dosage: 100 MG TWICE DAILY
     Route: 048

REACTIONS (1)
  - Brugada syndrome [Recovered/Resolved]
